FAERS Safety Report 10189653 (Version 1)
Quarter: 2014Q2

REPORT INFORMATION
  Report Type: Spontaneous
  Country: US (occurrence: None)
  Receive Date: 20140521
  Receipt Date: 20140521
  Transmission Date: 20141212
  Serious: Yes (Hospitalization)
  Sender: FDA-Public Use
  Company Number: None

PATIENT
  Sex: Male

DRUGS (1)
  1. GLEEVEC [Suspect]
     Indication: RECTAL CANCER
     Route: 048
     Dates: start: 20140402

REACTIONS (3)
  - Pneumonia [None]
  - Adverse event [None]
  - Drug intolerance [None]
